FAERS Safety Report 5431416-2 (Version None)
Quarter: 2007Q3

REPORT INFORMATION
  Report Type: 
  Country: None (occurrence: None)
  Receive Date: 20070830
  Receipt Date: 20070605
  Transmission Date: 20080115
  Serious: No
  Sender: FDA-Public Use
  Company Number: A0654235A

PATIENT
  Age: 36 Year
  Sex: Female

DRUGS (1)
  1. WELLBUTRIN XL [Suspect]
     Indication: POSTPARTUM DEPRESSION
     Dosage: 150MG PER DAY
     Route: 048
     Dates: start: 20070501

REACTIONS (4)
  - ANOREXIA [None]
  - INDIFFERENCE [None]
  - INSOMNIA [None]
  - NAUSEA [None]
